FAERS Safety Report 24010453 (Version 1)
Quarter: 2024Q2

REPORT INFORMATION
  Report Type: Spontaneous
  Country: US (occurrence: None)
  Receive Date: 20240624
  Receipt Date: 20240624
  Transmission Date: 20240715
  Serious: Yes (Other)
  Sender: FDA-Public Use
  Company Number: None

PATIENT
  Age: 47 Year
  Sex: Male
  Weight: 90 kg

DRUGS (3)
  1. ENTYVIO [Suspect]
     Active Substance: VEDOLIZUMAB
     Indication: Colitis ulcerative
  2. LIALDA [Concomitant]
     Active Substance: MESALAMINE
  3. VITAMIN D [Concomitant]
     Active Substance: VITAMIN D NOS

REACTIONS (5)
  - Vomiting [None]
  - Diarrhoea [None]
  - Dizziness [None]
  - Decreased appetite [None]
  - Abdominal discomfort [None]

NARRATIVE: CASE EVENT DATE: 20240527
